FAERS Safety Report 8125664-0 (Version None)
Quarter: 2012Q1

REPORT INFORMATION
  Report Type: 
  Country: None (occurrence: None)
  Receive Date: 20120206
  Receipt Date: 20120125
  Transmission Date: 20120608
  Serious: Yes (Hospitalization)
  Sender: FDA-Public Use
  Company Number: 2012AP000220

PATIENT
  Age: 85 Year
  Sex: Female

DRUGS (12)
  1. PROCHLORPERAZINE MALEATE [Concomitant]
  2. SERETIDE (SERETIDE) [Concomitant]
  3. TIOTROPIUM BROMIDE (TIOTROPIUM BROMIDE) [Concomitant]
  4. ASPIRIN [Concomitant]
  5. CARBOCISTEINE (CARBOCISTEINE) [Concomitant]
  6. LEVOTHYROXINE SODIUM [Concomitant]
  7. ADCAL-D3 (LEKOVIT CA) [Concomitant]
  8. ENOXAPARIN SODIUM [Concomitant]
  9. PREDNISOLONE [Concomitant]
  10. ALENDRONATE SODIUM [Suspect]
     Indication: OSTEOPOROSIS
     Dosage: 70 MG;UNKNOWN;PO;QW
     Route: 048
     Dates: start: 20120101
  11. ALBUTEROL SULFATE [Concomitant]
  12. DIPYRIDAMOLE [Concomitant]

REACTIONS (3)
  - OESOPHAGEAL ULCER HAEMORRHAGE [None]
  - FALL [None]
  - PELVIC FRACTURE [None]
